FAERS Safety Report 6471985-7 (Version None)
Quarter: 2009Q4

REPORT INFORMATION
  Report Type: 
  Country: None (occurrence: None)
  Receive Date: 20091203
  Receipt Date: 20080611
  Transmission Date: 20100525
  Serious: Yes (Death, Hospitalization)
  Sender: FDA-Public Use
  Company Number: CA-ELI_LILLY_AND_COMPANY-CA200804003566

PATIENT
  Sex: Female

DRUGS (4)
  1. CYMBALTA [Suspect]
     Indication: BIPOLAR DISORDER
     Dosage: 60 MG, UNK
     Route: 048
     Dates: start: 20080218, end: 20080325
  2. LISINOPRIL [Concomitant]
     Dosage: 10 MG, UNK
  3. LIPITOR [Concomitant]
     Dosage: 20 MG, UNK
  4. OXYBUTYNIN CHLORIDE [Concomitant]
     Dosage: 5 MG, 2/D

REACTIONS (6)
  - CARDIOPULMONARY FAILURE [None]
  - GASTRITIS VIRAL [None]
  - MYOCARDIAL INFARCTION [None]
  - NAUSEA [None]
  - SINUS TACHYCARDIA [None]
  - VOMITING [None]
